FAERS Safety Report 6500280-2 (Version None)
Quarter: 2009Q4

REPORT INFORMATION
  Report Type: 
  Country: None (occurrence: None)
  Receive Date: 20091216
  Receipt Date: 20091211
  Transmission Date: 20100525
  Serious: Yes (Other)
  Sender: FDA-Public Use
  Company Number: JP-ROCHE-665465

PATIENT
  Sex: Male
  Weight: 72 kg

DRUGS (5)
  1. XELODA [Suspect]
     Indication: COLON CANCER
     Dosage: DRUG: XELODA 300
     Route: 048
  2. AVASTIN [Suspect]
     Indication: COLON CANCER
     Dosage: DRUG: AVASTINA 100MG/4ML
     Route: 041
     Dates: start: 20090615, end: 20090810
  3. ELPLAT [Concomitant]
     Route: 041
     Dates: start: 20090615, end: 20090810
  4. LEVOFOLINATE [Concomitant]
     Route: 041
     Dates: start: 20090615, end: 20090810
  5. FLUOROURACIL [Concomitant]
     Route: 041
     Dates: start: 20090615, end: 20090810

REACTIONS (1)
  - NEPHROTIC SYNDROME [None]
